FAERS Safety Report 15786512 (Version 4)
Quarter: 2019Q1

REPORT INFORMATION
  Report Type: Spontaneous
  Country: HU (occurrence: HU)
  Receive Date: 20190103
  Receipt Date: 20190130
  Transmission Date: 20190417
  Serious: Yes (Other)
  Sender: FDA-Public Use
  Company Number: HU-PFIZER INC-2018534809

PATIENT
  Age: 48 Year
  Sex: Female

DRUGS (11)
  1. CARBOPLATIN. [Suspect]
     Active Substance: CARBOPLATIN
     Indication: BREAST CANCER METASTATIC
     Dosage: 300 MG/M2, UNK,6 CYCLES
     Route: 042
     Dates: start: 20180212, end: 20180726
  2. TEGRETOL [Concomitant]
     Active Substance: CARBAMAZEPINE
     Dosage: 200 MG, BID (400 MILLIGARM DAILY)
     Route: 048
  3. CARBOPLATIN. [Suspect]
     Active Substance: CARBOPLATIN
     Indication: METASTASES TO CENTRAL NERVOUS SYSTEM
     Dosage: 200 MG/M2, UNK
     Route: 042
     Dates: start: 20180212, end: 20180726
  4. LETROZOLE. [Concomitant]
     Active Substance: LETROZOLE
     Indication: BREAST CANCER METASTATIC
     Dosage: 2.5 MILLIGRAM DAILY
     Route: 065
     Dates: start: 201709
  5. GLYCERIN [GLYCEROL] [Concomitant]
     Dosage: 50 %, UNK
     Route: 065
  6. CYCLOPHOSPHAMIDE. [Suspect]
     Active Substance: CYCLOPHOSPHAMIDE
     Indication: BREAST CANCER METASTATIC
     Dosage: UNK
  7. LETROZOLE. [Concomitant]
     Active Substance: LETROZOLE
     Dosage: 2.5 MG, QD
     Route: 065
     Dates: start: 201709
  8. BETALOC [METOPROLOL TARTRATE] [Concomitant]
     Active Substance: METOPROLOL TARTRATE
     Dosage: 25 MILLIGRAM DAILY
     Route: 048
  9. PALBOCICLIB [Suspect]
     Active Substance: PALBOCICLIB
     Indication: BREAST CANCER METASTATIC
     Dosage: 125 MG, QD, FOR 3 WEEKS WITH 1 WEEK BREAK
     Route: 065
     Dates: start: 201709
  10. DOCETAXEL. [Suspect]
     Active Substance: DOCETAXEL
     Indication: BREAST CANCER METASTATIC
     Dosage: UNK
  11. ADRIAMYCIN [Suspect]
     Active Substance: DOXORUBICIN HYDROCHLORIDE
     Indication: BREAST CANCER METASTATIC
     Dosage: UNK
     Route: 065

REACTIONS (8)
  - Thrombocytopenia [Recovered/Resolved]
  - Epilepsy [Recovering/Resolving]
  - Nausea [Unknown]
  - Loss of consciousness [Recovering/Resolving]
  - Gait disturbance [Unknown]
  - Facial paresis [Recovering/Resolving]
  - Weight decreased [Unknown]
  - Speech disorder [Unknown]

NARRATIVE: CASE EVENT DATE: 20170719
